FAERS Safety Report 9179819 (Version 1)
Quarter: 2012Q4

REPORT INFORMATION
  Report Type: 
  Country: KR (occurrence: KR)
  Receive Date: 20121029
  Receipt Date: 20121029
  Transmission Date: 20130627
  Serious: Yes (Death)
  Sender: FDA-Public Use
  Company Number: KR-BAXTER-2012BAX021987

PATIENT

DRUGS (6)
  1. ENDOXAN INJ 500MG [Suspect]
     Indication: NON-HODGKIN^S LYMPHOMA
     Route: 042
  2. BUSULFAN [Suspect]
     Indication: NON-HODGKIN^S LYMPHOMA
     Route: 042
  3. ETOPOSIDE [Suspect]
     Indication: NON-HODGKIN^S LYMPHOMA
     Route: 042
  4. PHENYTOIN [Concomitant]
     Indication: PROPHYLAXIS
     Route: 065
  5. MESNA [Concomitant]
     Indication: PROPHYLAXIS
     Route: 065
  6. G-CSF [Concomitant]
     Indication: INFECTION PROPHYLAXIS
     Dosage: 5 G/KG
     Route: 058

REACTIONS (2)
  - Bacterial infection [Fatal]
  - Mucosal inflammation [Fatal]
